FAERS Safety Report 16152060 (Version 1)
Quarter: 2019Q2

REPORT INFORMATION
  Report Type: Spontaneous
  Country: US (occurrence: US)
  Receive Date: 20190329
  Receipt Date: 20190329
  Transmission Date: 20190711
  Serious: Yes (Other)
  Sender: FDA-Public Use
  Company Number: None

PATIENT
  Age: 74 Year
  Sex: Male
  Weight: 106.8 kg

DRUGS (2)
  1. ON-Q PAIN RELIEF SYSTEM UTILIZING BUPIVACAINE, 0.25 % [Suspect]
     Active Substance: BUPIVACAINE
     Indication: PAIN MANAGEMENT
     Route: 058
  2. ON-Q PAIN RELIEF SYSTEM (DEVICE) [Suspect]
     Active Substance: DEVICE

REACTIONS (1)
  - Tremor [None]

NARRATIVE: CASE EVENT DATE: 20190328
